FAERS Safety Report 5528607-9 (Version None)
Quarter: 2007Q4

REPORT INFORMATION
  Report Type: 
  Country: None (occurrence: None)
  Receive Date: 20071126
  Receipt Date: 20071030
  Transmission Date: 20080405
  Serious: Yes (Hospitalization)
  Sender: FDA-Public Use
  Company Number: M-07-0966

PATIENT
  Age: 66 Year
  Sex: Female

DRUGS (17)
  1. PACERONE [Suspect]
     Indication: ATRIAL FIBRILLATION
     Dosage: 200 MG PO QD
     Route: 048
     Dates: end: 20040316
  2. CORDARONE [Suspect]
     Indication: ATRIAL FLUTTER
     Dosage: 200 MG PO QD
     Route: 048
     Dates: start: 19980612
  3. DILTIAZEM [Concomitant]
  4. LIPITOR [Concomitant]
  5. ACCUPRIL [Concomitant]
  6. TRIAMTERENE WITH HYDROCHLOROTHIAZIDE [Concomitant]
  7. NPH ILETIN II [Concomitant]
  8. REGULAR INSULIN [Concomitant]
  9. ACTOS [Concomitant]
  10. GLUCOVANCE [Concomitant]
  11. ESTROGEN [Concomitant]
  12. PROVERA [Concomitant]
  13. NEXIUM [Concomitant]
  14. BEXTRA [Concomitant]
  15. SOMA [Concomitant]
  16. NORCO [Concomitant]
  17. ASPIRIN [Concomitant]

REACTIONS (4)
  - ATRIAL FIBRILLATION [None]
  - HYPERTHYROIDISM [None]
  - NAUSEA [None]
  - THYROIDITIS SUBACUTE [None]
